FAERS Safety Report 12321901 (Version 2)
Quarter: 2016Q2

REPORT INFORMATION
  Report Type: Spontaneous
  Country: JP (occurrence: JP)
  Receive Date: 20160502
  Receipt Date: 20160606
  Transmission Date: 20160815
  Serious: No
  Sender: FDA-Public Use
  Company Number: JP-GLAXOSMITHKLINE-JP2016JPN033877

PATIENT
  Age: 25 Year
  Sex: Female

DRUGS (2)
  1. DUAC GEL [Suspect]
     Active Substance: BENZOYL PEROXIDE\CLINDAMYCIN PHOSPHATE
     Indication: ACNE
  2. DUAC GEL [Suspect]
     Active Substance: BENZOYL PEROXIDE\CLINDAMYCIN PHOSPHATE
     Indication: ACNE
     Dosage: UNK
     Route: 050
     Dates: start: 20151001, end: 20151002

REACTIONS (6)
  - Dermatitis contact [Recovered/Resolved]
  - Application site pruritus [Unknown]
  - Application site erythema [Unknown]
  - Application site swelling [Recovered/Resolved]
  - Application site irritation [Recovered/Resolved]
  - Rash maculo-papular [Unknown]

NARRATIVE: CASE EVENT DATE: 20151002
